FAERS Safety Report 25169885 (Version 1)
Quarter: 2025Q2

REPORT INFORMATION
  Report Type: Spontaneous
  Country: SE (occurrence: SE)
  Receive Date: 20250407
  Receipt Date: 20250407
  Transmission Date: 20250717
  Serious: Yes (Hospitalization, Other)
  Sender: SANOFI AVENTIS
  Company Number: None

PATIENT
  Age: 51 Year
  Sex: Female

DRUGS (6)
  1. ARAVA [Suspect]
     Active Substance: LEFLUNOMIDE
     Indication: Rheumatoid arthritis
     Dates: start: 20181218, end: 20250310
  2. ARAVA [Suspect]
     Active Substance: LEFLUNOMIDE
     Indication: Rheumatoid factor positive
  3. ARAVA [Suspect]
     Active Substance: LEFLUNOMIDE
     Indication: Anti-cyclic citrullinated peptide antibody positive
  4. RITUXIMAB [Suspect]
     Active Substance: RITUXIMAB
     Indication: Rheumatoid arthritis
     Dates: start: 20210609, end: 20250314
  5. RITUXIMAB [Suspect]
     Active Substance: RITUXIMAB
     Indication: Rheumatoid factor positive
  6. RITUXIMAB [Suspect]
     Active Substance: RITUXIMAB
     Indication: Anti-cyclic citrullinated peptide antibody positive

REACTIONS (6)
  - Inflammatory marker increased [Recovering/Resolving]
  - Ureaplasma test positive [Recovering/Resolving]
  - Subcutaneous abscess [Recovering/Resolving]
  - Vulvitis [Recovering/Resolving]
  - Abdominal abscess [Recovering/Resolving]
  - Arthritis bacterial [Recovering/Resolving]

NARRATIVE: CASE EVENT DATE: 20241101
